FAERS Safety Report 11790379 (Version 2)
Quarter: 2015Q4

REPORT INFORMATION
  Report Type: Spontaneous
  Country: RO (occurrence: RO)
  Receive Date: 20151201
  Receipt Date: 20151207
  Transmission Date: 20160305
  Serious: Yes (Other)
  Sender: FDA-Public Use
  Company Number: RO-BAYER-2015-472016

PATIENT
  Age: 32 Year
  Sex: Female

DRUGS (4)
  1. TINZAPARIN SODIUM [Concomitant]
     Active Substance: TINZAPARIN SODIUM
  2. ACETYLSALICYLIC ACID({=100 MG) [Suspect]
     Active Substance: ASPIRIN
  3. TINZAPARIN SODIUM [Concomitant]
     Active Substance: TINZAPARIN SODIUM
  4. ACETYLSALICYLIC ACID({=100 MG) [Suspect]
     Active Substance: ASPIRIN

REACTIONS (10)
  - Diplopia [None]
  - Maternal exposure during pregnancy [None]
  - Nystagmus [None]
  - Headache [None]
  - Superior sagittal sinus thrombosis [None]
  - Generalised tonic-clonic seizure [None]
  - Transverse sinus thrombosis [None]
  - Confusional state [None]
  - Premature labour [None]
  - Stillbirth [None]

NARRATIVE: CASE EVENT DATE: 2012
